FAERS Safety Report 10461170 (Version 1)
Quarter: 2014Q3

REPORT INFORMATION
  Report Type: Spontaneous
  Country: US (occurrence: None)
  Receive Date: 20140917
  Receipt Date: 20140917
  Transmission Date: 20150326
  Serious: Yes (Other)
  Sender: FDA-Public Use
  Company Number: None

PATIENT
  Age: 50 Year
  Sex: Female

DRUGS (2)
  1. LEVAQUIN [Suspect]
     Active Substance: LEVOFLOXACIN
     Indication: ORAL SURGERY
     Dosage: ONE PILL  QD ORAL
     Route: 048
     Dates: start: 20130718, end: 20130722
  2. LEVAQUIN [Suspect]
     Active Substance: LEVOFLOXACIN
     Indication: INFECTION PROPHYLAXIS
     Dosage: ONE PILL  QD ORAL
     Route: 048
     Dates: start: 20130718, end: 20130722

REACTIONS (1)
  - Tendonitis [None]

NARRATIVE: CASE EVENT DATE: 20130722
